FAERS Safety Report 7515468-1 (Version None)
Quarter: 2011Q2

REPORT INFORMATION
  Report Type: 
  Country: None (occurrence: None)
  Receive Date: 20110601
  Receipt Date: 20100625
  Transmission Date: 20111010
  Serious: Yes (Hospitalization)
  Sender: FDA-Public Use
  Company Number: US-PFIZER INC-2010072688

PATIENT
  Age: 44 Year
  Sex: Male
  Weight: 78.925 kg

DRUGS (3)
  1. LISINOPRIL AND HYDROCHLOROTHIAZIDE [Concomitant]
     Dosage: [LISINOPRIL 20]/[HYDROCHLOROTHIAZIDE 12.5] ONCE DAILY
  2. METOPROLOL [Concomitant]
     Dosage: 50 MG, 1X/DAY
  3. CHANTIX [Suspect]
     Indication: TOBACCO ABUSE
     Dosage: 0.5 MG, UNK
     Dates: start: 20100602, end: 20100606

REACTIONS (1)
  - PANCREATITIS [None]
